FAERS Safety Report 7682485-0 (Version None)
Quarter: 2011Q3

REPORT INFORMATION
  Report Type: 
  Country: None (occurrence: None)
  Receive Date: 20110810
  Receipt Date: 20110729
  Transmission Date: 20111222
  Serious: Yes (Hospitalization)
  Sender: FDA-Public Use
  Company Number: FRP11000252

PATIENT
  Age: 60 Year
  Sex: Female
  Weight: 78.0187 kg

DRUGS (7)
  1. NOCTAMIDE (LORMETAZEPAM) [Concomitant]
  2. THERALENE (ALIMEMAZINE TARTRATE) [Concomitant]
  3. ACTONEL [Suspect]
     Dosage: 35 MG, 1/WEEK, ORAL
     Route: 048
     Dates: start: 20101119
  4. DEPAKOTE [Concomitant]
  5. SULFARLEM  /00557701/ (ANETHOLE TRITHIONE, CHOLINE BITARTRATE) [Concomitant]
  6. PAROXETINE HYDROCHLORIDE [Concomitant]
  7. ABILIFY [Suspect]
     Dosage: ,ORAL
     Route: 048
     Dates: start: 20100521, end: 20101001

REACTIONS (10)
  - TUBULOINTERSTITIAL NEPHRITIS AND UVEITIS SYNDROME [None]
  - RENAL FAILURE ACUTE [None]
  - CONFUSIONAL STATE [None]
  - EOSINOPHILIA [None]
  - HYPERCHOLESTEROLAEMIA [None]
  - RENAL TUBULAR DISORDER [None]
  - NORMOCHROMIC NORMOCYTIC ANAEMIA [None]
  - IRIDOCYCLITIS [None]
  - C-REACTIVE PROTEIN INCREASED [None]
  - PLATELET COUNT DECREASED [None]
